FAERS Safety Report 24629256 (Version 3)
Quarter: 2024Q4

REPORT INFORMATION
  Report Type: Spontaneous
  Country: FR (occurrence: FR)
  Receive Date: 20241118
  Receipt Date: 20241205
  Transmission Date: 20250115
  Serious: Yes (Other)
  Sender: AUROBINDO
  Company Number: FR-AFSSAPS-AVNT2024000851

PATIENT
  Age: 37 Year
  Sex: Female

DRUGS (2)
  1. ACETAMINOPHEN [Suspect]
     Active Substance: ACETAMINOPHEN
     Indication: Product used for unknown indication
     Dosage: UNK [UP TO 30 TABLETS/DAY IN CASE OF MAJOR SEIZURES]
     Route: 048
     Dates: start: 2013
  2. CODEINE [Suspect]
     Active Substance: CODEINE
     Indication: Product used for unknown indication
     Dosage: UNK (UP TO 30 TABLETS/DAY IN CASE OF MAJOR SEIZURES)
     Route: 048
     Dates: start: 2013

REACTIONS (3)
  - Drug dependence [Not Recovered/Not Resolved]
  - Overdose [Unknown]
  - Product use issue [Unknown]
